FAERS Safety Report 19305057 (Version 8)
Quarter: 2022Q2

REPORT INFORMATION
  Report Type: Spontaneous
  Country: CA (occurrence: CA)
  Receive Date: 20210526
  Receipt Date: 20220513
  Transmission Date: 20220720
  Serious: Yes (Other)
  Sender: FDA-Public Use
  Company Number: CA-CELLTRION INC.-2020CA024468

PATIENT

DRUGS (24)
  1. INFLECTRA [Suspect]
     Active Substance: INFLIXIMAB-DYYB
     Indication: Crohn^s disease
     Dosage: 700 MG OR 10 MG/KG 0, 2, 6 WEEKS, THEN EVERY 8 WEEKS/WEEK 0 DOSE
     Route: 042
     Dates: start: 20200727, end: 20200727
  2. INFLECTRA [Suspect]
     Active Substance: INFLIXIMAB-DYYB
     Dosage: 700 MG EVERY 4 WEEKS/WEEK 2 DOSE
     Route: 042
     Dates: start: 20200806, end: 20200806
  3. INFLECTRA [Suspect]
     Active Substance: INFLIXIMAB-DYYB
     Dosage: 700 MG EVERY 4 WEEKS/WEEK 2 DOSE
     Route: 042
     Dates: start: 20200806, end: 20200806
  4. INFLECTRA [Suspect]
     Active Substance: INFLIXIMAB-DYYB
     Dosage: 700 MG OR 10 MG/KG 0, 2, 6 WEEKS, THEN EVERY 8 WEEKS/WEEK 6 DOSE
     Route: 042
     Dates: start: 20200902, end: 20200902
  5. INFLECTRA [Suspect]
     Active Substance: INFLIXIMAB-DYYB
     Dosage: 700 MG OR 10 MG/KG 0, 2, 6 WEEKS, THEN EVERY 8 WEEKS
     Route: 042
     Dates: start: 20201029, end: 20201223
  6. INFLECTRA [Suspect]
     Active Substance: INFLIXIMAB-DYYB
     Dosage: 700 MG OR 10 MG/KG 0, 2, 6 WEEKS, THEN EVERY 8 WEEKS
     Route: 042
     Dates: start: 20201029
  7. INFLECTRA [Suspect]
     Active Substance: INFLIXIMAB-DYYB
     Dosage: 700 MG OR 10 MG/KG 0, 2, 6 WEEKS, THEN EVERY 8 WEEKS
     Route: 042
     Dates: start: 20201223, end: 20201223
  8. INFLECTRA [Suspect]
     Active Substance: INFLIXIMAB-DYYB
     Dosage: 700 MG OR 10 MG/KG 0, 2, 6 WEEKS, THEN EVERY 8 WEEKS
     Route: 042
     Dates: start: 20201223, end: 20201223
  9. INFLECTRA [Suspect]
     Active Substance: INFLIXIMAB-DYYB
     Dosage: 700 MG RE-INDUCTION Q 0, 2, 6 WEEK THEN EVERY 4 WEEKS
     Route: 042
     Dates: start: 20210205
  10. INFLECTRA [Suspect]
     Active Substance: INFLIXIMAB-DYYB
     Dosage: 700 MG 0, 2, 6 WEEK THEN EVERY 4 WEEKS
     Route: 042
     Dates: start: 20210219
  11. INFLECTRA [Suspect]
     Active Substance: INFLIXIMAB-DYYB
     Dosage: 700 MG Q 0, 2, 6 WEEK THEN EVERY 4 WEEKS
     Route: 042
     Dates: start: 20210219
  12. INFLECTRA [Suspect]
     Active Substance: INFLIXIMAB-DYYB
     Dosage: 700 MG Q 0, 2, 6 WEEK THEN EVERY 4 WEEKS
     Route: 042
     Dates: start: 20210219
  13. INFLECTRA [Suspect]
     Active Substance: INFLIXIMAB-DYYB
     Dosage: 700 MG Q 0, 2, 6 WEEK THEN EVERY 4 WEEKS
     Route: 042
     Dates: start: 20210319
  14. INFLECTRA [Suspect]
     Active Substance: INFLIXIMAB-DYYB
     Dosage: 700 MG 0, 2, 6 WEEK THEN EVERY 4 WEEKS
     Route: 042
     Dates: start: 20210319
  15. INFLECTRA [Suspect]
     Active Substance: INFLIXIMAB-DYYB
     Dosage: 700 MG 0, 2, 6 WEEK THEN EVERY 4 WEEKS
     Route: 042
     Dates: start: 20210416
  16. INFLECTRA [Suspect]
     Active Substance: INFLIXIMAB-DYYB
     Dosage: 700 MG 0, 2, 6 WEEK THEN EVERY 4 WEEKS
     Route: 042
     Dates: start: 20210513
  17. INFLECTRA [Suspect]
     Active Substance: INFLIXIMAB-DYYB
     Dosage: 700 MG 0, 2, 6 WEEK THEN EVERY 4 WEEKS
     Route: 042
     Dates: start: 20210610
  18. INFLECTRA [Suspect]
     Active Substance: INFLIXIMAB-DYYB
     Dosage: 700 MG 0, 2, 6 WEEK THEN EVERY 4 WEEKS
     Route: 042
     Dates: start: 20210610
  19. INFLECTRA [Suspect]
     Active Substance: INFLIXIMAB-DYYB
     Dosage: 700 MG 0, 2, 6 WEEK THEN EVERY 4 WEEKS
     Route: 042
     Dates: start: 20210813
  20. INFLECTRA [Suspect]
     Active Substance: INFLIXIMAB-DYYB
     Dosage: 700 MG 0, 2, 6 WEEK THEN EVERY 4 WEEKS
     Route: 042
     Dates: start: 20210813
  21. INFLECTRA [Suspect]
     Active Substance: INFLIXIMAB-DYYB
     Dosage: 700 MG 0, 2, 6 WEEK THEN EVERY 4 WEEKS
     Route: 042
     Dates: start: 20220126
  22. INFLECTRA [Suspect]
     Active Substance: INFLIXIMAB-DYYB
     Dosage: 700 MG 0, 2, 6 WEEK THEN EVERY 4 WEEKS
     Route: 042
     Dates: start: 20220421
  23. VITAMIN B12 [Concomitant]
     Active Substance: CYANOCOBALAMIN
     Dosage: 1 DF
     Route: 065
  24. MINERALS\VITAMINS [Concomitant]
     Active Substance: MINERALS\VITAMINS
     Dosage: 1 DOSAGE FORM
     Route: 065

REACTIONS (14)
  - Gastrointestinal disorder [Unknown]
  - Weight decreased [Unknown]
  - Weight increased [Unknown]
  - Drug ineffective [Unknown]
  - Off label use [Unknown]
  - Off label use [Unknown]
  - Inappropriate schedule of product administration [Unknown]
  - Body temperature decreased [Unknown]
  - Blood pressure diastolic decreased [Unknown]
  - Rash macular [Unknown]
  - Poor venous access [Unknown]
  - Blood pressure increased [Unknown]
  - Oxygen saturation decreased [Unknown]
  - Hernia [Unknown]

NARRATIVE: CASE EVENT DATE: 20200727
